FAERS Safety Report 5856842-9 (Version None)
Quarter: 2008Q3

REPORT INFORMATION
  Report Type: 
  Country: None (occurrence: None)
  Receive Date: 20080825
  Receipt Date: 20080815
  Transmission Date: 20090109
  Serious: Yes (Hospitalization, Disabling)
  Sender: FDA-Public Use
  Company Number: GB-PFIZER INC-2008069138

PATIENT
  Sex: Male
  Weight: 110 kg

DRUGS (2)
  1. ARTHROTEC [Suspect]
     Indication: OSTEOARTHRITIS
     Route: 048
     Dates: start: 20040517, end: 20070910
  2. TRAMADOL HCL [Concomitant]
     Route: 048
     Dates: start: 20070831, end: 20071019

REACTIONS (2)
  - CARDIAC FAILURE [None]
  - CONGESTIVE CARDIOMYOPATHY [None]
